FAERS Safety Report 7585699-3 (Version None)
Quarter: 2011Q3

REPORT INFORMATION
  Report Type: 
  Country: None (occurrence: None)
  Receive Date: 20110701
  Receipt Date: 20110617
  Transmission Date: 20111222
  Serious: Yes (Other)
  Sender: FDA-Public Use
  Company Number: GB-RANBAXY-2011R1-45591

PATIENT
  Sex: Male

DRUGS (4)
  1. FERROUS SULFATE TAB [Suspect]
     Indication: ANAEMIA
     Dosage: 200 MG, UNK
     Route: 064
     Dates: start: 20090608, end: 20090831
  2. CEPHALEXIN [Suspect]
     Indication: URINARY TRACT INFECTION
     Dosage: 500 MG, UNK
     Route: 064
     Dates: start: 20090226, end: 20090301
  3. M-M-RVAXPRO [Suspect]
     Indication: IMMUNISATION
     Dosage: UNK
     Route: 064
     Dates: start: 20081112, end: 20081112
  4. ECONAZOLE NITRATE [Suspect]
     Indication: CANDIDIASIS
     Dosage: 150 MG, UNK
     Route: 064
     Dates: start: 20090522, end: 20090522

REACTIONS (5)
  - BRONCHIOLITIS [None]
  - THELITIS [None]
  - MATERNAL EXPOSURE DURING PREGNANCY [None]
  - TRANSIENT TACHYPNOEA OF THE NEWBORN [None]
  - HIP DYSPLASIA [None]
